FAERS Safety Report 16711210 (Version 1)
Quarter: 2019Q4

REPORT INFORMATION
  Report Type: Spontaneous
  Country: US (occurrence: US)
  Receive Date: 20190816
  Receipt Date: 20190816
  Transmission Date: 20200122
  Serious: Yes (Death)
  Sender: FDA-Public Use
  Company Number: None

PATIENT
  Age: 83 Year
  Sex: Male
  Weight: 77.56 kg

DRUGS (17)
  1. FAMOTIDINE. [Concomitant]
     Active Substance: FAMOTIDINE
  2. TAMSULOSIN [Concomitant]
     Active Substance: TAMSULOSIN
  3. TRIAMCINOLONE [Concomitant]
     Active Substance: TRIAMCINOLONE
  4. AMLODIPINE [Concomitant]
     Active Substance: AMLODIPINE BESYLATE
  5. HUMALOG [Concomitant]
     Active Substance: INSULIN LISPRO
  6. AVODART [Concomitant]
     Active Substance: DUTASTERIDE
  7. METOPROLOL. [Concomitant]
     Active Substance: METOPROLOL
  8. CALCIUM + VITAMIN D [Concomitant]
     Active Substance: CALCIUM\VITAMIN D
  9. JADENU [Suspect]
     Active Substance: DEFERASIROX
     Indication: REFRACTORY ANAEMIA WITH AN EXCESS OF BLASTS
     Route: 048
     Dates: start: 20190408, end: 20190720
  10. GLIPIZIDE. [Concomitant]
     Active Substance: GLIPIZIDE
  11. MECLIZINE [Concomitant]
     Active Substance: MECLIZINE HYDROCHLORIDE
  12. ALLOPURINOL. [Concomitant]
     Active Substance: ALLOPURINOL
  13. PERIDEX [Concomitant]
     Active Substance: CHLORHEXIDINE GLUCONATE
  14. ATENOLOL. [Concomitant]
     Active Substance: ATENOLOL
  15. DIOVAN [Concomitant]
     Active Substance: VALSARTAN
  16. VITAMIN B6 [Concomitant]
     Active Substance: PYRIDOXINE HYDROCHLORIDE
  17. DOCUSATE [Concomitant]
     Active Substance: DOCUSATE

REACTIONS (1)
  - Death [None]

NARRATIVE: CASE EVENT DATE: 20190720
